FAERS Safety Report 20952514 (Version 1)
Quarter: 2022Q2

REPORT INFORMATION
  Report Type: Spontaneous
  Country: US (occurrence: None)
  Receive Date: 20220612
  Receipt Date: 20220612
  Transmission Date: 20220720
  Serious: Yes (Hospitalization)
  Sender: FDA-Public Use
  Company Number: None

PATIENT
  Age: 32 Year
  Sex: Male
  Weight: 45.6 kg

DRUGS (2)
  1. METHOCARBAMOL [Suspect]
     Active Substance: METHOCARBAMOL
     Indication: Musculoskeletal pain
     Dosage: FREQUENCY : ONCE;?
     Route: 040
     Dates: start: 20220524, end: 20220524
  2. SODIUM CHLORIDE 0.9% [Concomitant]
     Dates: start: 20220524, end: 20220524

REACTIONS (2)
  - Sinus bradycardia [None]
  - Cardiac telemetry abnormal [None]

NARRATIVE: CASE EVENT DATE: 20220524
